FAERS Safety Report 6638966-1 (Version None)
Quarter: 2010Q1

REPORT INFORMATION
  Report Type: 
  Country: None (occurrence: None)
  Receive Date: 20100316
  Receipt Date: 20100316
  Transmission Date: 20100710
  Serious: Yes (Life-Threatening, Hospitalization, Other)
  Sender: FDA-Public Use
  Company Number: None

PATIENT
  Age: 19 Year
  Sex: Male
  Weight: 51.7101 kg

DRUGS (1)
  1. PENICILLIN G BENZATHINE [Suspect]
     Indication: PHARYNGITIS STREPTOCOCCAL
     Dosage: 12 MILLION UNITS ONCE IM
     Route: 030
     Dates: start: 20100304, end: 20100304

REACTIONS (5)
  - CONVULSION [None]
  - DIZZINESS [None]
  - MYOCLONUS [None]
  - PALLOR [None]
  - RESPIRATORY ARREST [None]
